FAERS Safety Report 6708173-2 (Version None)
Quarter: 2010Q2

REPORT INFORMATION
  Report Type: 
  Country: None (occurrence: None)
  Receive Date: 20100503
  Receipt Date: 20091002
  Transmission Date: 20101027
  Serious: No
  Sender: FDA-Public Use
  Company Number: US-ASTRAZENECA-2009SE17682

PATIENT
  Sex: Female

DRUGS (4)
  1. NEXIUM [Suspect]
     Route: 048
  2. BONIVA [Suspect]
  3. FOSAMAX [Suspect]
  4. FLECTOR [Suspect]

REACTIONS (8)
  - ABDOMINAL PAIN UPPER [None]
  - ARTHRALGIA [None]
  - BONE PAIN [None]
  - DIZZINESS [None]
  - HEADACHE [None]
  - MYALGIA [None]
  - NAUSEA [None]
  - NECK PAIN [None]
